FAERS Safety Report 20216200 (Version 1)
Quarter: 2021Q4

REPORT INFORMATION
  Report Type: Spontaneous
  Country: US (occurrence: None)
  Receive Date: 20211222
  Receipt Date: 20211222
  Transmission Date: 20220303
  Serious: Yes (Other)
  Sender: FDA-Public Use
  Company Number: US-Hikma Pharmaceuticals USA Inc.-US-H14001-21-05354

PATIENT
  Age: 26 Day
  Sex: Male

DRUGS (1)
  1. METHADONE [Suspect]
     Active Substance: METHADONE HYDROCHLORIDE
     Indication: Product used for unknown indication
     Dosage: UNKNOWN
     Route: 064

REACTIONS (11)
  - Drug withdrawal syndrome neonatal [Unknown]
  - Constipation [Unknown]
  - Irritability [Unknown]
  - Cellulitis [Recovered/Resolved]
  - Peripheral swelling [Recovered/Resolved]
  - Erythema [Recovered/Resolved]
  - Purulent discharge [Recovered/Resolved]
  - Pustule [Recovered/Resolved]
  - Staphylococcal infection [Recovered/Resolved]
  - Paronychia [Recovered/Resolved]
  - Foetal exposure during pregnancy [Recovered/Resolved]
